FAERS Safety Report 6635159-9 (Version None)
Quarter: 2010Q1

REPORT INFORMATION
  Report Type: 
  Country: None (occurrence: None)
  Receive Date: 20100315
  Receipt Date: 20100309
  Transmission Date: 20100710
  Serious: Yes (Death, Hospitalization, Other)
  Sender: FDA-Public Use
  Company Number: PHEH2010US03042

PATIENT
  Sex: Female

DRUGS (1)
  1. GLEEVEC [Suspect]
     Indication: ACUTE LYMPHOCYTIC LEUKAEMIA
     Dosage: 600 MG, QD
     Route: 048

REACTIONS (3)
  - CLOSTRIDIUM DIFFICILE COLITIS [None]
  - INTRACRANIAL ANEURYSM [None]
  - RESPIRATORY SYNCYTIAL VIRUS INFECTION [None]
